FAERS Safety Report 21872203 (Version 1)
Quarter: 2023Q1

REPORT INFORMATION
  Report Type: Spontaneous
  Country: US (occurrence: None)
  Receive Date: 20230113
  Receipt Date: 20230113
  Transmission Date: 20230418
  Serious: No
  Sender: FDA-Public Use
  Company Number: None

PATIENT
  Age: 76 Year
  Sex: Female
  Weight: 83.01 kg

DRUGS (13)
  1. DEFERASIROX [Suspect]
     Active Substance: DEFERASIROX
     Indication: Mantle cell lymphoma
     Dosage: FREQUENCY : DAILY;?
     Route: 048
     Dates: end: 20230111
  2. AMILORIDE [Concomitant]
     Active Substance: AMILORIDE
  3. ANAGRELIDE [Concomitant]
     Active Substance: ANAGRELIDE
  4. BYSTOLIC [Concomitant]
     Active Substance: NEBIVOLOL HYDROCHLORIDE
  5. DANAZOL [Concomitant]
     Active Substance: DANAZOL
  6. FOLIC ACID [Concomitant]
     Active Substance: FOLIC ACID
  7. JAKAFI [Concomitant]
     Active Substance: RUXOLITINIB
  8. PEPCID [Concomitant]
     Active Substance: FAMOTIDINE
  9. TRAMADOL [Concomitant]
     Active Substance: TRAMADOL
  10. VESICARE [Concomitant]
     Active Substance: SOLIFENACIN SUCCINATE
  11. VITAMIN D [Concomitant]
     Active Substance: VITAMIN D NOS
  12. WELLBUTRIN XL [Concomitant]
     Active Substance: BUPROPION HYDROCHLORIDE
  13. ZOFRAN [Concomitant]
     Active Substance: ONDANSETRON HYDROCHLORIDE

REACTIONS (2)
  - Blood creatinine increased [None]
  - Therapy cessation [None]
